FAERS Safety Report 7178125-X (Version None)
Quarter: 2010Q4

REPORT INFORMATION
  Report Type: 
  Country: None (occurrence: None)
  Receive Date: 20101220
  Receipt Date: 20101214
  Transmission Date: 20110411
  Serious: Yes (Hospitalization)
  Sender: FDA-Public Use
  Company Number: A0900421A

PATIENT
  Sex: Female
  Weight: 68 kg

DRUGS (3)
  1. LAMICTAL [Suspect]
     Dosage: 25MG TWICE PER DAY
     Dates: start: 20101012
  2. GARDENAL [Concomitant]
  3. DIAZEPAM [Concomitant]

REACTIONS (6)
  - CHILLS [None]
  - DIZZINESS [None]
  - HEADACHE [None]
  - HYPERTENSION [None]
  - NAUSEA [None]
  - PRODUCT QUALITY ISSUE [None]
